FAERS Safety Report 26025536 (Version 1)
Quarter: 2025Q4

REPORT INFORMATION
  Report Type: Spontaneous
  Country: CN (occurrence: CN)
  Receive Date: 20251111
  Receipt Date: 20251111
  Transmission Date: 20260118
  Serious: Yes (Hospitalization, Other)
  Sender: ACCORD
  Company Number: None

PATIENT
  Age: 72 Year
  Sex: Male
  Weight: 64 kg

DRUGS (4)
  1. CARBOPLATIN [Suspect]
     Active Substance: CARBOPLATIN
     Indication: Product used for unknown indication
  2. SERPLULIMAB [Suspect]
     Active Substance: SERPLULIMAB
     Indication: Oesophageal squamous cell carcinoma
     Dosage: 300 MILLIGRAM, QD, IV DRIP, STRENGTH: 10 MG/ML
     Route: 042
     Dates: start: 20250924, end: 20250924
  3. PACLITAXEL [Suspect]
     Active Substance: PACLITAXEL
     Indication: Product used for unknown indication
  4. SERPLULIMAB [Suspect]
     Active Substance: SERPLULIMAB
     Indication: Oesophageal squamous cell carcinoma
     Dosage: STRENGTH: 10 MG/ML

REACTIONS (2)
  - Myelosuppression [Unknown]
  - Immune-mediated hepatic disorder [Recovering/Resolving]

NARRATIVE: CASE EVENT DATE: 20251013
